FAERS Safety Report 9867210 (Version 1)
Quarter: 2014Q1

REPORT INFORMATION
  Report Type: Spontaneous
  Country: US (occurrence: US)
  Receive Date: 20140204
  Receipt Date: 20140204
  Transmission Date: 20141002
  Serious: No
  Sender: FDA-Public Use
  Company Number: US-009507513-1402USA000320

PATIENT
  Age: 21 Year
  Sex: Female
  Weight: 49.89 kg

DRUGS (1)
  1. IMPLANON [Suspect]
     Indication: CONTRACEPTION
     Dosage: LEFT ARM
     Route: 059
     Dates: start: 20100419

REACTIONS (6)
  - Limb discomfort [Unknown]
  - Anxiety [Unknown]
  - Amenorrhoea [Unknown]
  - Menorrhagia [Recovered/Resolved]
  - Incorrect drug administration duration [Unknown]
  - Polymenorrhoea [Unknown]
